FAERS Safety Report 9367037 (Version 1)
Quarter: 2013Q2

REPORT INFORMATION
  Report Type: Spontaneous
  Country: BR (occurrence: BR)
  Receive Date: 20130625
  Receipt Date: 20130625
  Transmission Date: 20140414
  Serious: Yes (Hospitalization, Other)
  Sender: FDA-Public Use
  Company Number: PHHY2013BR064721

PATIENT
  Age: 85 Year
  Sex: Male

DRUGS (3)
  1. APRESOLIN [Suspect]
     Indication: HYPERTENSION
     Dosage: 2 DF, (50 MG) BID
     Route: 048
     Dates: end: 201304
  2. AMLODIPINE [Suspect]
     Dosage: 5 MG, UNK
     Dates: start: 201305
  3. ABLOK [Suspect]
     Dosage: 50 MG, UNK

REACTIONS (3)
  - Cerebrovascular accident [Unknown]
  - Confusional state [Unknown]
  - Coordination abnormal [Unknown]
